FAERS Safety Report 8416424-1 (Version None)
Quarter: 2012Q2

REPORT INFORMATION
  Report Type: 
  Country: None (occurrence: None)
  Receive Date: 20120606
  Receipt Date: 20120529
  Transmission Date: 20120825
  Serious: Yes (Hospitalization)
  Sender: FDA-Public Use
  Company Number: CA-ASTRAZENECA-2012SE36661

PATIENT
  Age: 67 Year
  Sex: Female

DRUGS (7)
  1. PALAFER [Concomitant]
  2. STOOL SOFTENER MEDICATION [Concomitant]
  3. TERAZOSIN HCL [Concomitant]
     Indication: HYPERTENSION
  4. PANTOPRAZOLE SODIUM [Concomitant]
     Indication: GASTRIC ULCER
  5. CRESTOR [Suspect]
     Route: 048
     Dates: start: 20120528
  6. CRESTOR [Suspect]
     Indication: BLOOD CHOLESTEROL INCREASED
     Route: 048
  7. NORVASC [Concomitant]

REACTIONS (5)
  - PRURITUS GENERALISED [None]
  - CONFUSIONAL STATE [None]
  - GASTRIC HAEMORRHAGE [None]
  - GASTRIC ULCER PERFORATION [None]
  - OFF LABEL USE [None]
